FAERS Safety Report 9552092 (Version 1)
Quarter: 2013Q3

REPORT INFORMATION
  Report Type: Spontaneous
  Country: US (occurrence: None)
  Receive Date: 20130923
  Receipt Date: 20130923
  Transmission Date: 20140515
  Serious: Yes (Other)
  Sender: FDA-Public Use
  Company Number: 2013P1019320

PATIENT
  Sex: 0

DRUGS (2)
  1. PHENOBARBITAL [Suspect]
     Indication: DRUG WITHDRAWAL SYNDROME NEONATAL
  2. MORPHINE [Concomitant]

REACTIONS (4)
  - Neonatal oversedation [None]
  - Neonatal respiratory depression [None]
  - Feeding disorder neonatal [None]
  - Anticonvulsant drug level above therapeutic [None]
